FAERS Safety Report 17367650 (Version 1)
Quarter: 2020Q1

REPORT INFORMATION
  Report Type: Spontaneous
  Country: US (occurrence: US)
  Receive Date: 20200203
  Receipt Date: 20200203
  Transmission Date: 20200409
  Serious: Yes (Hospitalization)
  Sender: FDA-Public Use
  Company Number: None

PATIENT
  Age: 55 Year
  Sex: Female

DRUGS (3)
  1. CINACALCET HCL [Suspect]
     Active Substance: CINACALCET HYDROCHLORIDE
     Indication: RENAL TRANSPLANT
     Route: 048
     Dates: start: 20190813
  2. FUROSEMIDE. [Concomitant]
     Active Substance: FUROSEMIDE
  3. POT CL MIRCO [Concomitant]

REACTIONS (2)
  - Cholecystectomy [None]
  - Therapy cessation [None]

NARRATIVE: CASE EVENT DATE: 20200125
